FAERS Safety Report 11326919 (Version 2)
Quarter: 2015Q3

REPORT INFORMATION
  Report Type: Spontaneous
  Country: JP (occurrence: JP)
  Receive Date: 20150731
  Receipt Date: 20150817
  Transmission Date: 20151125
  Serious: Yes (Death, Hospitalization, Other)
  Sender: FDA-Public Use
  Company Number: JP-PFIZER INC-2015252786

PATIENT
  Age: 71 Year
  Sex: Male
  Weight: 54 kg

DRUGS (7)
  1. LEVOFOLINATE [Suspect]
     Active Substance: LEVOLEUCOVORIN CALCIUM
     Indication: PANCREATIC CARCINOMA
     Dosage: 196.3 MG/M2, 1X/DAY (310 MG/BODY)
     Route: 041
     Dates: start: 20141014, end: 20141014
  2. ELPLAT [Suspect]
     Active Substance: OXALIPLATIN
     Indication: PANCREATIC CARCINOMA
     Dosage: 82.3 MG/M2, 1X/DAY (130 MG/BODY)
     Route: 041
     Dates: start: 20141014, end: 20141014
  3. ELPLAT [Suspect]
     Active Substance: OXALIPLATIN
     Dosage: 82.3 MG/M2, 1X/DAY (130 MG/BODY)
     Route: 041
     Dates: start: 20141027, end: 20141027
  4. CAMPTO [Suspect]
     Active Substance: IRINOTECAN
     Dosage: 145.7 MG/M2, 1X/DAY (230 MG/BODY)
     Route: 041
     Dates: start: 20141027, end: 20141027
  5. 5-FU [Concomitant]
     Active Substance: FLUOROURACIL
     Dosage: 2400.3 MG/M2, D1-2 (3790 MG/BODY/D1-2)
     Dates: start: 20141014, end: 20141027
  6. CAMPTO [Suspect]
     Active Substance: IRINOTECAN
     Indication: PANCREATIC CARCINOMA
     Dosage: 145.7 MG/M2, 1X/DAY (230 MG/BODY)
     Route: 041
     Dates: start: 20141014, end: 20141014
  7. LEVOFOLINATE [Suspect]
     Active Substance: LEVOLEUCOVORIN CALCIUM
     Dosage: 196.3 MG/M2, 1X/DAY (310 MG/BODY)
     Route: 041
     Dates: start: 20141027, end: 20141027

REACTIONS (12)
  - Amylase increased [Not Recovered/Not Resolved]
  - Bacteraemia [Unknown]
  - Aspartate aminotransferase increased [Not Recovered/Not Resolved]
  - Decreased appetite [Not Recovered/Not Resolved]
  - Pancreatic carcinoma [Fatal]
  - Pyrexia [Not Recovered/Not Resolved]
  - Nausea [Not Recovered/Not Resolved]
  - Hyperglycaemia [Not Recovered/Not Resolved]
  - Disease progression [Fatal]
  - Pancreatic fistula [Not Recovered/Not Resolved]
  - Alanine aminotransferase increased [Not Recovered/Not Resolved]
  - Fatigue [Recovered/Resolved]

NARRATIVE: CASE EVENT DATE: 20150225
